FAERS Safety Report 8417936-7 (Version None)
Quarter: 2012Q2

REPORT INFORMATION
  Report Type: 
  Country: None (occurrence: None)
  Receive Date: 20120601
  Receipt Date: 20120601
  Transmission Date: 20120825
  Serious: No
  Sender: FDA-Public Use
  Company Number: None

PATIENT
  Sex: Female

DRUGS (1)
  1. MUSCLE + JOINT PAIN RELIEF RUB (KAREWAY) [Suspect]
     Indication: MYALGIA
     Dosage: PRN TOPICAL
     Route: 061
     Dates: start: 20120515

REACTIONS (2)
  - PRODUCT CONTAMINATION PHYSICAL [None]
  - PAIN OF SKIN [None]
